FAERS Safety Report 8083672 (Version 3)
Quarter: 2013Q1

REPORT INFORMATION
  Report Type: Spontaneous
  Country: US (occurrence: None)
  Receive Date: 20110729
  Receipt Date: 20121120
  Transmission Date: 20140127
  Serious: Yes (Hospitalization, Other)
  Sender: FDA-Public Use
  Company Number: TPA2011A04026

PATIENT
  Age: 55 Year
  Sex: Male
  Weight: 129.28 kg

DRUGS (9)
  1. ACTOS [Suspect]
     Indication: TYPE 2 DIABETES MELLITUS
     Route: 048
     Dates: start: 2002, end: 20110622
  2. FENOFIBRATE (FENOFIBRATE) [Concomitant]
  3. JANUMET (JANUMET) [Concomitant]
  4. HUMOLOG MIX (INSULIN LISPRO, INSULIN LISPRO PROTAMINE SUSPENSION) [Concomitant]
  5. GLIMEPIRIDE (GLIMEPIRIDE) [Concomitant]
  6. FLOMAX [Concomitant]
  7. ASA (ACETYLSALICYLIC ACID) [Concomitant]
  8. PRAVASTATIN [Concomitant]
  9. CITALOPRAM HYDROBROMIDE [Concomitant]

REACTIONS (1)
  - Bladder transitional cell carcinoma [None]
